FAERS Safety Report 12373124 (Version 2)
Quarter: 2016Q2

REPORT INFORMATION
  Report Type: Report from Study
  Country: US (occurrence: US)
  Receive Date: 20160516
  Receipt Date: 20160609
  Transmission Date: 20160815
  Serious: Yes (Hospitalization)
  Sender: FDA-Public Use
  Company Number: US-MALLINCKRODT-T201601319

PATIENT
  Age: 72 Year
  Sex: Female

DRUGS (1)
  1. REPOSITORY CORTICOTROPIN INJECTION [Suspect]
     Active Substance: CORTICOTROPIN
     Indication: NEPHROTIC SYNDROME
     Dosage: 80 UNITS ONCE WEEKLY
     Route: 030
     Dates: start: 20160316, end: 20160407

REACTIONS (5)
  - Diarrhoea [Recovered/Resolved]
  - Anaemia [Unknown]
  - Urinary tract infection [Unknown]
  - Hyperhidrosis [Not Recovered/Not Resolved]
  - Pseudomonas infection [Unknown]

NARRATIVE: CASE EVENT DATE: 201604
